FAERS Safety Report 4281821-5 (Version None)
Quarter: 2004Q1

REPORT INFORMATION
  Report Type: 
  Country: None (occurrence: None)
  Receive Date: 20040129
  Receipt Date: 20040129
  Transmission Date: 20041129
  Serious: Yes (Life-Threatening, Hospitalization)
  Sender: FDA-Public Use
  Company Number: None

PATIENT
  Age: 83 Year
  Sex: Female

DRUGS (8)
  1. BACTRIM DS [Suspect]
     Indication: BRONCHITIS
     Dosage: 1 TABLET TWICE DAIL ORAL
     Route: 048
     Dates: start: 20040122, end: 20040127
  2. ACTIGALL [Concomitant]
  3. ASPIRIN [Concomitant]
  4. DIGOXIN [Concomitant]
  5. FOSAMAX [Concomitant]
  6. PREVACID [Concomitant]
  7. TENORMIN [Concomitant]
  8. TRICOR [Concomitant]

REACTIONS (6)
  - BRADYCARDIA [None]
  - DIZZINESS [None]
  - HEADACHE [None]
  - HYPERKALAEMIA [None]
  - NAUSEA [None]
  - RENAL FAILURE [None]
